FAERS Safety Report 10763889 (Version 3)
Quarter: 2015Q4

REPORT INFORMATION
  Report Type: Other
  Country: US (occurrence: US)
  Receive Date: 20150204
  Receipt Date: 20151224
  Transmission Date: 20160304
  Serious: Yes (Disabling, Other)
  Sender: FDA-Public Use
  Company Number: US-ACORDA-ACO_101822_2014

PATIENT
  Age: 59 Year
  Sex: Female
  Weight: 64.85 kg

DRUGS (5)
  1. AMPYRA [Suspect]
     Active Substance: DALFAMPRIDINE
     Dosage: 10 UNK, UNK
     Route: 048
  2. AUBAGIO [Concomitant]
     Active Substance: TERIFLUNOMIDE
     Indication: MULTIPLE SCLEROSIS
     Dosage: 14 MG, QD
     Route: 048
     Dates: start: 201304
  3. AMPYRA [Suspect]
     Active Substance: DALFAMPRIDINE
     Dosage: UNK
     Dates: start: 20151002
  4. AMPYRA [Suspect]
     Active Substance: DALFAMPRIDINE
     Indication: GAIT DISTURBANCE
     Dosage: 10 MG, BID
     Route: 048
     Dates: start: 2010
  5. AMPYRA [Suspect]
     Active Substance: DALFAMPRIDINE
     Dosage: 10 MG, BID
     Route: 048
     Dates: start: 20140613, end: 201507

REACTIONS (15)
  - Asthenia [Recovering/Resolving]
  - Weight decreased [Unknown]
  - Gait disturbance [Recovering/Resolving]
  - Therapy cessation [Recovered/Resolved]
  - Monoparesis [Recovering/Resolving]
  - Lip injury [Recovered/Resolved]
  - Inappropriate schedule of drug administration [Unknown]
  - Decreased appetite [Unknown]
  - Nervousness [Not Recovered/Not Resolved]
  - Anxiety [Recovering/Resolving]
  - Fall [Recovered/Resolved]
  - Fall [Not Recovered/Not Resolved]
  - Abasia [Recovered/Resolved]
  - Abasia [Recovered/Resolved]
  - Therapy cessation [Unknown]

NARRATIVE: CASE EVENT DATE: 2014
